FAERS Safety Report 11962804 (Version 1)
Quarter: 2016Q1

REPORT INFORMATION
  Report Type: Report from Study
  Country: US (occurrence: US)
  Receive Date: 20160126
  Receipt Date: 20160126
  Transmission Date: 20160526
  Serious: Yes (Other)
  Sender: FDA-Public Use
  Company Number: US-ABBVIE-15K-163-1356723-00

PATIENT
  Age: 56 Year
  Sex: Male
  Weight: 180.69 kg

DRUGS (6)
  1. HYDROCHLOROTHIAZIDE. [Concomitant]
     Active Substance: HYDROCHLOROTHIAZIDE
     Indication: PRODUCT USED FOR UNKNOWN INDICATION
  2. METHOTREXATE [Concomitant]
     Active Substance: METHOTREXATE
     Indication: PRODUCT USED FOR UNKNOWN INDICATION
     Dates: start: 201501
  3. CYCLOBENZAPRINE [Concomitant]
     Active Substance: CYCLOBENZAPRINE
     Indication: PRODUCT USED FOR UNKNOWN INDICATION
  4. HUMIRA [Suspect]
     Active Substance: ADALIMUMAB
     Indication: RHEUMATOID ARTHRITIS
     Route: 058
     Dates: start: 20150225, end: 20150225
  5. ALLOPURINOL. [Concomitant]
     Active Substance: ALLOPURINOL
     Indication: PRODUCT USED FOR UNKNOWN INDICATION
  6. LEVOXYL [Concomitant]
     Active Substance: LEVOTHYROXINE SODIUM
     Indication: PRODUCT USED FOR UNKNOWN INDICATION

REACTIONS (13)
  - Red cell distribution width increased [Unknown]
  - Change of bowel habit [Not Recovered/Not Resolved]
  - Haematocrit decreased [Unknown]
  - Red blood cell count decreased [Unknown]
  - Blood glucose increased [Unknown]
  - White blood cell count decreased [Unknown]
  - Blood sodium decreased [Unknown]
  - Pyrexia [Unknown]
  - White blood cell count decreased [Not Recovered/Not Resolved]
  - Blood chloride decreased [Unknown]
  - Defaecation urgency [Not Recovered/Not Resolved]
  - Haemoglobin decreased [Unknown]
  - Abdominal pain [Recovered/Resolved]

NARRATIVE: CASE EVENT DATE: 20150226
